FAERS Safety Report 10048145 (Version 2)
Quarter: 2014Q2

REPORT INFORMATION
  Report Type: Spontaneous
  Country: US (occurrence: US)
  Receive Date: 20140331
  Receipt Date: 20140404
  Transmission Date: 20141212
  Serious: Yes (Death, Hospitalization, Other)
  Sender: FDA-Public Use
  Company Number: US-JNJFOC-20140318484

PATIENT
  Age: 61 Year
  Sex: Male
  Weight: 138 kg

DRUGS (22)
  1. IMBRUVICA [Suspect]
     Indication: CHRONIC LYMPHOCYTIC LEUKAEMIA
     Route: 048
     Dates: start: 20140214, end: 20140303
  2. DOXAZOSIN [Concomitant]
     Dates: start: 20110915
  3. MULTIVITAMINS [Concomitant]
     Dates: start: 20110915
  4. GLUCOSAMINE / CHONDROITIN [Concomitant]
     Dosage: 500 MG-400 MG TAB TWICE DAILY
     Dates: start: 20110915
  5. LABETALOL [Concomitant]
     Dates: start: 20110915
  6. GEMFIBROZIL [Concomitant]
     Dates: start: 20110915
  7. JANUMET [Concomitant]
     Dosage: 50 MG-1000 MG TWICE DAILY
     Route: 048
     Dates: start: 20111116
  8. LOSARTAN AND HYDROCHLOROTHIAZIDE [Concomitant]
     Dosage: 100 MG-12.5 MG DAILY
     Dates: start: 20120109
  9. ZOLPIDEM [Concomitant]
     Indication: SLEEP DISORDER
     Dosage: 5 MG AT BEDTIME AS NEEDED
     Route: 060
     Dates: start: 20120223
  10. ATORVASTATIN [Concomitant]
     Route: 048
     Dates: start: 20120430
  11. FLUOXETINE [Concomitant]
     Route: 048
     Dates: start: 20121101
  12. SYNTHROID [Concomitant]
     Route: 048
     Dates: start: 20121203
  13. ZYRTEC [Concomitant]
     Route: 048
     Dates: start: 20130528
  14. TYLENOL EXTRA STRENGTH [Concomitant]
     Route: 048
     Dates: start: 20130528
  15. TUSSIN DM [Concomitant]
     Dosage: 10 MG-100 MG/5ML 2 TBSP FOUR TIMES DAILY
     Route: 048
     Dates: start: 20130729
  16. NYQUIL COLD AND FLU [Concomitant]
     Dosage: 6.25MG-30MG-15MG-500MG/15 ML AS NEEDED
     Dates: start: 20130923
  17. FLUTICASONE [Concomitant]
     Dosage: 50 MCG/1 SPRAY TWICE DAILY
     Dates: start: 20131217
  18. ACYCLOVIR [Concomitant]
     Dates: start: 20140110
  19. ADVAIR [Concomitant]
     Dosage: 250 MCG-50MCG-1 INHALATION TWICE DAILY
     Route: 055
     Dates: start: 20140114
  20. PROAIR HFA [Concomitant]
     Route: 055
     Dates: start: 20140114
  21. NYSTATIN [Concomitant]
     Dosage: 5 ML FOUR TIMES A DAY, SWISH AND SPIT
     Dates: start: 20140214
  22. IVIGLOB-EX [Concomitant]
     Route: 042

REACTIONS (5)
  - Myocardial infarction [Fatal]
  - Lung infiltration [Unknown]
  - Renal impairment [Unknown]
  - Epistaxis [Recovering/Resolving]
  - White blood cell count increased [Unknown]
